FAERS Safety Report 9312169 (Version 1)
Quarter: 2013Q2

REPORT INFORMATION
  Report Type: Spontaneous
  Country: JP (occurrence: JP)
  Receive Date: 20130528
  Receipt Date: 20130528
  Transmission Date: 20140414
  Serious: Yes (Death, Other)
  Sender: FDA-Public Use
  Company Number: JP-BAXTER-2013BAX019244

PATIENT
  Age: 56 Year
  Sex: Female

DRUGS (10)
  1. ENDOXAN INJECTION 500MG (CYCLOPHOSPAMIDE) [Suspect]
     Indication: RENAL IMPAIRMENT
     Route: 042
     Dates: start: 20110304, end: 20110304
  2. PREDNISOLONE [Suspect]
     Indication: SYSTEMIC LUPUS ERYTHEMATOSUS
  3. PREDNISOLONE [Suspect]
     Indication: RENAL IMPAIRMENT
     Dates: start: 20100407
  4. PREDNISOLONE [Suspect]
     Indication: PYREXIA
  5. PREDNISOLONE [Suspect]
     Indication: ARTHRALGIA
     Dates: start: 20110202
  6. PREDNISOLONE [Suspect]
     Dates: start: 20110218
  7. METHYLPREDNISOLONE [Concomitant]
     Indication: PRODUCT USED FOR UNKNOWN INDICATION
     Dates: start: 20110303, end: 20110305
  8. METHYLPREDNISOLONE [Concomitant]
     Route: 065
     Dates: start: 20110317, end: 20110319
  9. MICAFUNGIN [Concomitant]
     Indication: FUNGAL INFECTION
     Dates: start: 201103
  10. GANCICLOVIR [Concomitant]
     Indication: PRODUCT USED FOR UNKNOWN INDICATION
     Dates: start: 20110324

REACTIONS (7)
  - Bacterial sepsis [Fatal]
  - Platelet count decreased [Unknown]
  - Catheter site haemorrhage [Unknown]
  - Intestinal haemorrhage [Unknown]
  - Anuria [Unknown]
  - Oliguria [Unknown]
  - Somnolence [Unknown]
